FAERS Safety Report 9160311 (Version 1)
Quarter: 2013Q1

REPORT INFORMATION
  Report Type: Spontaneous
  Country: JP (occurrence: JP)
  Receive Date: 20130313
  Receipt Date: 20130313
  Transmission Date: 20140127
  Serious: Yes (Other)
  Sender: FDA-Public Use
  Company Number: JP-ROCHE-1199820

PATIENT
  Age: 1 Year
  Sex: Male
  Weight: 11.4 kg

DRUGS (5)
  1. TAMIFLU [Suspect]
     Indication: INFLUENZA
     Route: 048
     Dates: start: 20130304
  2. ASVERIN (TIPEPIDINE HIBENZATE) [Concomitant]
     Dosage: DOSAGE IS UNCERTAIN.
     Route: 065
  3. PERIACTIN [Concomitant]
     Dosage: DOSAGE IS UNCERTAIN.
     Route: 065
  4. MUCODYNE [Concomitant]
     Dosage: DOSAGE IS UNCERTAIN.
     Route: 048
  5. ALPINY [Concomitant]
     Dosage: DOSAGE IS UNCERTAIN.
     Route: 054

REACTIONS (1)
  - Abnormal behaviour [Unknown]
